FAERS Safety Report 12271893 (Version 1)
Quarter: 2016Q2

REPORT INFORMATION
  Report Type: Spontaneous
  Country: EG (occurrence: EG)
  Receive Date: 20160415
  Receipt Date: 20160415
  Transmission Date: 20160815
  Serious: Yes (Hospitalization)
  Sender: FDA-Public Use
  Company Number: EG-DEPOMED, INC.-EG-2016DEP008300

PATIENT

DRUGS (1)
  1. DICLOFENAC POTASSIUM. [Suspect]
     Active Substance: DICLOFENAC POTASSIUM
     Indication: DYSMENORRHOEA
     Dosage: 4 DF, QMO (MONTHLY, 2 SACHETS PER DAY, THE 1ST 2 DAYS IN MENSTRUATION)
     Route: 065

REACTIONS (3)
  - Blood urine present [Recovered/Resolved]
  - Renal pain [Recovered/Resolved]
  - Nephrolithiasis [Recovered/Resolved]

NARRATIVE: CASE EVENT DATE: 20151231
